FAERS Safety Report 10412837 (Version 1)
Quarter: 2014Q3

REPORT INFORMATION
  Report Type: Spontaneous
  Country: US (occurrence: None)
  Receive Date: 20140826
  Receipt Date: 20140826
  Transmission Date: 20150326
  Serious: Yes (Life-Threatening, Disabling)
  Sender: FDA-Public Use
  Company Number: None

PATIENT
  Age: 56 Year
  Sex: Male
  Weight: 104.33 kg

DRUGS (1)
  1. TRAMADOL 50 MG MYLAN [Suspect]
     Active Substance: TRAMADOL
     Indication: PAIN
     Dosage: 2 PILLS FOUR TIMES DAILY TAKEN BY MOUTH
     Route: 048
     Dates: start: 20130827, end: 20140821

REACTIONS (1)
  - Drug dependence [None]

NARRATIVE: CASE EVENT DATE: 20140821
